FAERS Safety Report 20158723 (Version 1)
Quarter: 2021Q4

REPORT INFORMATION
  Report Type: Report from Study
  Country: GB (occurrence: GB)
  Receive Date: 20211208
  Receipt Date: 20211208
  Transmission Date: 20220303
  Serious: Yes (Other)
  Sender: FDA-Public Use
  Company Number: GB-SUNPHARMA-2021RR-319850AA

PATIENT
  Age: 27 Year
  Sex: Female

DRUGS (3)
  1. PREDNISOLONE [Suspect]
     Active Substance: PREDNISOLONE
     Indication: Autoimmune hepatitis
     Dosage: UNK
     Route: 065
  2. BUDESONIDE [Suspect]
     Active Substance: BUDESONIDE
     Indication: Autoimmune hepatitis
     Dosage: 9 MILLIGRAM, DAILY
     Route: 065
  3. TACROLIMUS [Suspect]
     Active Substance: TACROLIMUS
     Indication: Autoimmune hepatitis
     Dosage: 1.5 MILLIGRAM, BID
     Route: 065

REACTIONS (4)
  - Exposure during pregnancy [Unknown]
  - Diabetes mellitus [Unknown]
  - Treatment noncompliance [Unknown]
  - Premature delivery [Unknown]
